FAERS Safety Report 14031494 (Version 2)
Quarter: 2017Q4

REPORT INFORMATION
  Report Type: Spontaneous
  Country: US (occurrence: US)
  Receive Date: 20171002
  Receipt Date: 20171007
  Transmission Date: 20180321
  Serious: No
  Sender: FDA-Public Use
  Company Number: US-009507513-1709USA014896

PATIENT
  Age: 72 Year
  Sex: Male

DRUGS (4)
  1. BELSOMRA [Suspect]
     Active Substance: SUVOREXANT
     Dosage: 1 TABLET AND A HALF (15 MG), QD
     Route: 048
  2. BELSOMRA [Suspect]
     Active Substance: SUVOREXANT
     Indication: INSOMNIA
     Dosage: 2 TABLETS (20 MG), QD
     Route: 048
     Dates: start: 201509
  3. TESTOSTERONE. [Concomitant]
     Active Substance: TESTOSTERONE
  4. KLONOPIN [Concomitant]
     Active Substance: CLONAZEPAM

REACTIONS (8)
  - Fatigue [Unknown]
  - Feeling abnormal [Unknown]
  - Intentional product misuse [Unknown]
  - Somnolence [Unknown]
  - Drug effect decreased [Unknown]
  - Anxiety [Unknown]
  - Wrong technique in product usage process [Unknown]
  - Amnesia [Unknown]

NARRATIVE: CASE EVENT DATE: 201511
